FAERS Safety Report 6916001-5 (Version None)
Quarter: 2010Q3

REPORT INFORMATION
  Report Type: 
  Country: None (occurrence: None)
  Receive Date: 20100809
  Receipt Date: 20100809
  Transmission Date: 20110219
  Serious: Yes (Other)
  Sender: FDA-Public Use
  Company Number: None

PATIENT
  Sex: Male
  Weight: 99.7913 kg

DRUGS (2)
  1. PAXIL [Suspect]
     Indication: OBSESSIVE-COMPULSIVE DISORDER
     Dates: start: 20000110, end: 20100807
  2. PAXIL [Suspect]
     Indication: SOCIAL PHOBIA
     Dates: start: 20000110, end: 20100807

REACTIONS (6)
  - ABASIA [None]
  - INSOMNIA [None]
  - NAUSEA [None]
  - PAIN [None]
  - PRODUCT QUALITY ISSUE [None]
  - WITHDRAWAL SYNDROME [None]
